FAERS Safety Report 9124152 (Version 1)
Quarter: 2013Q1

REPORT INFORMATION
  Report Type: Spontaneous
  Country: US (occurrence: US)
  Receive Date: 20130227
  Receipt Date: 20130227
  Transmission Date: 20140127
  Serious: Yes (Hospitalization, Other)
  Sender: FDA-Public Use
  Company Number: US-ASTRAZENECA-2013SE11325

PATIENT
  Age: 562 Month
  Sex: Male

DRUGS (6)
  1. LISINOPRIL [Suspect]
     Route: 048
  2. CRESTOR [Suspect]
     Indication: LIPIDS ABNORMAL
     Route: 048
     Dates: start: 201211, end: 201302
  3. CRESTOR [Suspect]
     Indication: LOW DENSITY LIPOPROTEIN INCREASED
     Route: 048
     Dates: start: 201211, end: 201302
  4. BRILINTA [Suspect]
     Indication: MYOCARDIAL INFARCTION
     Route: 048
     Dates: start: 20130125
  5. OXYCODONE [Concomitant]
     Indication: PAIN
  6. HYDROCODONE [Concomitant]
     Indication: PAIN

REACTIONS (5)
  - Rhabdomyolysis [Unknown]
  - Pain in extremity [Unknown]
  - Walking disability [Unknown]
  - Chest pain [Unknown]
  - Myocardial infarction [Unknown]
